FAERS Safety Report 15617500 (Version 2)
Quarter: 2020Q4

REPORT INFORMATION
  Report Type: Spontaneous
  Country: US (occurrence: US)
  Receive Date: 20181114
  Receipt Date: 20201012
  Transmission Date: 20210113
  Serious: Yes (Hospitalization, Other)
  Sender: FDA-Public Use
  Company Number: US-ELI_LILLY_AND_COMPANY-US201811003012

PATIENT
  Age: 63 Year
  Sex: Male

DRUGS (15)
  1. LEVEMIR [Concomitant]
     Active Substance: INSULIN DETEMIR
     Indication: TYPE 2 DIABETES MELLITUS
     Dosage: 90 U, UNKNOWN
  2. INSULIN LISPRO LILLY (MIRIOPEN) (KWIKPEN) [Suspect]
     Active Substance: INSULIN LISPRO
     Dosage: 14 U, DAILY
     Route: 058
  3. INSULIN LISPRO LILLY (MIRIOPEN) (KWIKPEN) [Suspect]
     Active Substance: INSULIN LISPRO
     Dosage: 36 U, EACH MORNING
     Route: 058
  4. INSULIN LISPRO LILLY (MIRIOPEN) (KWIKPEN) [Suspect]
     Active Substance: INSULIN LISPRO
     Dosage: 18 U, EACH EVENING
     Route: 058
  5. HUMALOG [Suspect]
     Active Substance: INSULIN LISPRO
     Indication: TYPE 2 DIABETES MELLITUS
     Dosage: UNK UNK, UNKNOWN
     Route: 065
  6. BASAGLAR [Suspect]
     Active Substance: INSULIN GLARGINE
     Indication: TYPE 2 DIABETES MELLITUS
     Dosage: UNK UNK, UNKNOWN
     Route: 065
  7. INSULIN LISPRO LILLY (MIRIOPEN) (KWIKPEN) [Suspect]
     Active Substance: INSULIN LISPRO
     Dosage: 14 U, DAILY
     Route: 058
  8. INSULIN LISPRO LILLY (MIRIOPEN) (KWIKPEN) [Suspect]
     Active Substance: INSULIN LISPRO
     Dosage: 18 U, EACH EVENING
     Route: 058
  9. INSULIN LISPRO LILLY (MIRIOPEN) (KWIKPEN) [Suspect]
     Active Substance: INSULIN LISPRO
     Dosage: 18 U, EACH EVENING
     Route: 058
  10. INSULIN LISPRO LILLY (MIRIOPEN) (KWIKPEN) [Suspect]
     Active Substance: INSULIN LISPRO
     Dosage: 14 U, DAILY
     Route: 058
  11. INSULIN LISPRO LILLY (MIRIOPEN) (KWIKPEN) [Suspect]
     Active Substance: INSULIN LISPRO
     Indication: TYPE 2 DIABETES MELLITUS
     Dosage: 36 U, EACH MORNING
     Route: 058
  12. INSULIN LISPRO LILLY (MIRIOPEN) (KWIKPEN) [Suspect]
     Active Substance: INSULIN LISPRO
     Indication: TYPE 2 DIABETES MELLITUS
     Dosage: 36 U, EACH MORNING
     Route: 058
  13. INSULIN LISPRO LILLY (MIRIOPEN) (KWIKPEN) [Suspect]
     Active Substance: INSULIN LISPRO
     Dosage: 14 U, DAILY
     Route: 058
  14. INSULIN LISPRO LILLY (MIRIOPEN) (KWIKPEN) [Suspect]
     Active Substance: INSULIN LISPRO
     Dosage: 18 U, EACH EVENING
     Route: 058
  15. INSULIN LISPRO LILLY (MIRIOPEN) (KWIKPEN) [Suspect]
     Active Substance: INSULIN LISPRO
     Dosage: 36 U, EACH MORNING
     Route: 058

REACTIONS (4)
  - Cerebrovascular accident [Unknown]
  - Blood glucose increased [Unknown]
  - Aphasia [Unknown]
  - Muscle spasticity [Unknown]

NARRATIVE: CASE EVENT DATE: 20161219
